FAERS Safety Report 15010390 (Version 1)
Quarter: 2018Q2

REPORT INFORMATION
  Report Type: Spontaneous
  Country: US (occurrence: US)
  Receive Date: 20180528
  Receipt Date: 20180528
  Transmission Date: 20180711
  Serious: Yes (Life-Threatening)
  Sender: FDA-Public Use
  Company Number: None

PATIENT
  Age: 36 Year
  Sex: Male
  Weight: 103.5 kg

DRUGS (1)
  1. LAMOTRIGINE. [Suspect]
     Active Substance: LAMOTRIGINE
     Indication: BIPOLAR II DISORDER
     Dates: start: 20180507, end: 20180522

REACTIONS (5)
  - Rash erythematous [None]
  - Pain [None]
  - Burning sensation [None]
  - Blood glucose increased [None]
  - Pyrexia [None]

NARRATIVE: CASE EVENT DATE: 20180522
